FAERS Safety Report 9255645 (Version 5)
Quarter: 2013Q2

REPORT INFORMATION
  Report Type: Spontaneous
  Country: US (occurrence: US)
  Receive Date: 20130425
  Receipt Date: 20130527
  Transmission Date: 20140414
  Serious: No
  Sender: FDA-Public Use
  Company Number: US-PFIZER INC-2012096622

PATIENT
  Age: 54 Year
  Sex: Female

DRUGS (25)
  1. CELEBREX [Suspect]
     Indication: ARTHRITIS
     Dosage: 200 MG, 2X/DAY AM AND PM
     Route: 065
  2. CELEBREX [Suspect]
     Indication: BACK PAIN
  3. PROCARDIA XL [Suspect]
     Dosage: 30 MG, 1X/DAY
     Route: 065
  4. GLYSET [Suspect]
     Indication: BLOOD GLUCOSE DECREASED
     Dosage: 50 MG, 2X/DAY
     Route: 065
  5. NEURONTIN [Suspect]
     Dosage: 300 MG, 2X/DAY
     Route: 065
  6. OMEPRAZOLE [Concomitant]
     Indication: GASTRIC DISORDER
     Dosage: 20 MG, 1X/DAY
  7. RANITIDINE [Concomitant]
     Indication: GASTRIC DISORDER
     Dosage: 300 MG, 2X/DAY
  8. ACARBOSE [Concomitant]
     Dosage: 25 MG, 2X/DAY
  9. ESTRADIOL [Concomitant]
     Indication: MENOPAUSE
     Dosage: 1 MG, 1X/DAY
  10. MEDROXYPROGESTERONE [Concomitant]
     Indication: MENOPAUSE
     Dosage: 5 MG, 1X/DAY
  11. ULTRAM [Concomitant]
     Indication: BACK PAIN
     Dosage: 50 MG, EVERY 4-6 HRS
  12. CYCLOBENZAPRINE [Concomitant]
     Indication: BACK PAIN
     Dosage: 10 MG, 3X/DAY AS NEEDED
  13. CYCLOBENZAPRINE [Concomitant]
     Indication: IRRITABLE BOWEL SYNDROME
  14. LORAZEPAM [Concomitant]
     Indication: PANIC ATTACK
     Dosage: 1 MG, 3X/DAY AS NEEDED
  15. CALCIUM WITH VITAMIN D [Concomitant]
     Dosage: 600 MG, 2X/DAY
  16. GLUCOSAMINE WITH MSM [Concomitant]
     Dosage: 2000 MG, 2X/DAY
  17. COLACE [Concomitant]
     Indication: CONSTIPATION
     Dosage: 2 AM, 3 PM
  18. SENNA [Concomitant]
     Dosage: 2 AM, 3 PM
  19. SENNA [Concomitant]
     Dosage: 15 MG, UNK
  20. VITAMIN C [Concomitant]
     Dosage: 1000 MG, UNK
  21. TYLENOL [Concomitant]
     Indication: PAIN
     Dosage: 500 MG 2 CAPS 2 TO 4 TIMES PER DAY
  22. NIFEDIAC [Concomitant]
     Indication: RAYNAUD^S PHENOMENON
     Dosage: 30 MG, 1X/DAY
  23. FLEXERIL [Concomitant]
     Dosage: 1 DF, TID PRN
     Route: 048
  24. PRECOSE [Concomitant]
     Dosage: 25 MG, 2X/DAY
  25. PROMETRIUM [Concomitant]
     Dosage: 100 MG, 1X/DAY
     Route: 048

REACTIONS (1)
  - Back disorder [Unknown]
